FAERS Safety Report 5340359-4 (Version None)
Quarter: 2007Q2

REPORT INFORMATION
  Report Type: 
  Country: None (occurrence: None)
  Receive Date: 20070405
  Receipt Date: 20061130
  Transmission Date: 20071010
  Serious: No
  Sender: FDA-Public Use
  Company Number: US200610003787

PATIENT
  Age: 59 Year
  Sex: Female
  Weight: 48.5 kg

DRUGS (14)
  1. CYMBALTA [Suspect]
     Indication: ANXIETY
     Dosage: 30 MG, DAILY (1/D), ORAL
     Route: 048
     Dates: start: 20060901, end: 20061015
  2. CYMBALTA [Suspect]
     Dosage: 60 MG, EACH MORNING, ORAL
     Route: 048
     Dates: start: 20061015, end: 20061001
  3. CYMBALTA [Suspect]
     Dosage: 30 MG, EACH EVENING, ORAL
     Route: 048
     Dates: start: 20061001, end: 20060101
  4. CYMBALTA [Suspect]
     Dosage: 30 MG, DAILY (1/D), ORAL
     Route: 048
     Dates: start: 20061206
  5. PROTONIX [Concomitant]
  6. SYNTHROID [Concomitant]
  7. XANAX [Concomitant]
  8. THYROGEN (THYROTROPIN ALFA) [Concomitant]
  9. LEXAPRO [Concomitant]
  10. THYROID TAB [Concomitant]
  11. IODINE (IODINE) [Concomitant]
  12. MULTIVITAMINS (ASCORBIC ACID, ERGOCALCIFEROL, FOLIC ACID, NICOTINAMIDE [Concomitant]
  13. VITAMIN B COMPLEX CUM PROCAIN (CALCIUM PANTOTHENATE, NICOTINAMIDE, PRO [Concomitant]
  14. CHROMIUM (CHROMIUM) [Concomitant]

REACTIONS (30)
  - ABDOMINAL DISTENSION [None]
  - AGITATION [None]
  - ANOREXIA [None]
  - ARTHRALGIA [None]
  - BLOOD GLUCOSE INCREASED [None]
  - BLOOD PRESSURE INCREASED [None]
  - CARDIAC DISORDER [None]
  - CONFUSIONAL STATE [None]
  - CRYING [None]
  - DEPRESSION [None]
  - DIZZINESS [None]
  - DRY EYE [None]
  - FEAR [None]
  - FEELING ABNORMAL [None]
  - FRUSTRATION [None]
  - HEADACHE [None]
  - HYPOAESTHESIA [None]
  - INSOMNIA [None]
  - IRRITABILITY [None]
  - MALAISE [None]
  - MEMORY IMPAIRMENT [None]
  - NAUSEA [None]
  - NIGHT SWEATS [None]
  - PAIN [None]
  - PANIC ATTACK [None]
  - SALIVARY HYPERSECRETION [None]
  - SEXUAL DYSFUNCTION [None]
  - SOMNOLENCE [None]
  - TINNITUS [None]
  - TREMOR [None]
